FAERS Safety Report 7034949-0 (Version None)
Quarter: 2010Q4

REPORT INFORMATION
  Report Type: 
  Country: None (occurrence: None)
  Receive Date: 20101008
  Receipt Date: 20100927
  Transmission Date: 20110411
  Serious: Yes (Other)
  Sender: FDA-Public Use
  Company Number: US-JNJCH-2010022204

PATIENT
  Age: 52 Year
  Sex: Female
  Weight: 72.6 kg

DRUGS (1)
  1. LISTERINE TOTAL CARE PLUS WHITENING [Suspect]
     Indication: DENTAL DISORDER PROPHYLAXIS
     Dosage: TEXT:RECOMMENDED DOSAGE TWICE A DAY
     Route: 048
     Dates: start: 20100926, end: 20100927

REACTIONS (3)
  - APPLICATION SITE BURN [None]
  - HYPOAESTHESIA ORAL [None]
  - OROPHARYNGEAL BLISTERING [None]
